FAERS Safety Report 9234421 (Version 1)
Quarter: 2013Q2

REPORT INFORMATION
  Report Type: Spontaneous
  Country: US (occurrence: US)
  Receive Date: 20130416
  Receipt Date: 20130416
  Transmission Date: 20140414
  Serious: No
  Sender: FDA-Public Use
  Company Number: US-PFIZER INC-2013116703

PATIENT
  Age: 76 Year
  Sex: Female
  Weight: 71.7 kg

DRUGS (2)
  1. CELEBREX [Suspect]
     Indication: ARTHRITIS
     Dosage: 200 MG, ONCE A DAY
     Route: 048
  2. WARFARIN [Concomitant]
     Indication: THROMBOSIS
     Dosage: UNK

REACTIONS (2)
  - Arthritis [Unknown]
  - Asthenia [Unknown]
